FAERS Safety Report 23711549 (Version 1)
Quarter: 2024Q2

REPORT INFORMATION
  Report Type: Spontaneous
  Country: US (occurrence: US)
  Receive Date: 20240405
  Receipt Date: 20240405
  Transmission Date: 20240716
  Serious: Yes (Death, Other)
  Sender: FDA-Public Use
  Company Number: US-Accord-416970

PATIENT
  Age: 14 Year
  Sex: Male

DRUGS (3)
  1. FLUOXETINE [Interacting]
     Active Substance: FLUOXETINE HYDROCHLORIDE
     Indication: Product used for unknown indication
  2. DEXTROMETHORPHAN [Interacting]
     Active Substance: DEXTROMETHORPHAN
  3. DRONABINOL [Concomitant]
     Active Substance: DRONABINOL

REACTIONS (7)
  - Drug interaction [Unknown]
  - Toxicity to various agents [Unknown]
  - Serotonin syndrome [Unknown]
  - Psychotic disorder [Unknown]
  - Homicide [Unknown]
  - High risk sexual behaviour [Unknown]
  - Completed suicide [Fatal]
